FAERS Safety Report 4647456-7 (Version None)
Quarter: 2005Q2

REPORT INFORMATION
  Report Type: 
  Country: None (occurrence: None)
  Receive Date: 20050428
  Receipt Date: 20050405
  Transmission Date: 20051028
  Serious: Yes (Other)
  Sender: FDA-Public Use
  Company Number: ES-JNJFOC-20050402758

PATIENT
  Sex: Female
  Weight: 59 kg

DRUGS (4)
  1. TOPIRAMATE [Suspect]
     Route: 065
  2. MOVALIS [Concomitant]
     Indication: PAIN
     Route: 049
  3. TRANSTEC [Concomitant]
     Route: 065
  4. PRIMPERAN TAB [Concomitant]
     Indication: VOMITING
     Route: 049

REACTIONS (6)
  - ASTHENIA [None]
  - HALLUCINATION [None]
  - MEMORY IMPAIRMENT [None]
  - MENTAL DISORDER [None]
  - OFF LABEL USE [None]
  - TREMOR [None]
